FAERS Safety Report 5914069-6 (Version None)
Quarter: 2008Q4

REPORT INFORMATION
  Report Type: 
  Country: None (occurrence: None)
  Receive Date: 20081007
  Receipt Date: 20080929
  Transmission Date: 20090506
  Serious: Yes (Life-Threatening, Hospitalization)
  Sender: FDA-Public Use
  Company Number: 238866J08USA

PATIENT
  Age: 53 Year
  Sex: Female

DRUGS (13)
  1. REBIF [Suspect]
     Indication: MULTIPLE SCLEROSIS
     Dosage: 44 MCG, 3 IN 1 WEEKS, SUBCUTANEOUS
     Route: 058
     Dates: start: 20040402
  2. NAPROSYN [Concomitant]
  3. LISINOPRIL [Concomitant]
  4. VERAPAMIL (VERAPAMIL/ 00014301/) [Concomitant]
  5. OMEPRAZOLE [Concomitant]
  6. AMITRIPTYLINE HCL [Concomitant]
  7. FLUOXETINE (FLUOXETINE/ 00724401/) [Concomitant]
  8. LORAZEPAM [Concomitant]
  9. CLONAZEPAM [Concomitant]
  10. NEURONTIN [Concomitant]
  11. TOPAMAX [Concomitant]
  12. ARICEPT [Concomitant]
  13. CONCERTA [Concomitant]

REACTIONS (4)
  - DEHYDRATION [None]
  - DELIRIUM [None]
  - DYSPHAGIA [None]
  - PNEUMONIA ASPIRATION [None]
